FAERS Safety Report 18156541 (Version 1)
Quarter: 2020Q3

REPORT INFORMATION
  Report Type: Spontaneous
  Country: US (occurrence: US)
  Receive Date: 20200816
  Receipt Date: 20200816
  Transmission Date: 20201103
  Serious: Yes (Life-Threatening, Disabling, Other)
  Sender: FDA-Public Use
  Company Number: None

PATIENT
  Age: 54 Year
  Sex: Female
  Weight: 50.4 kg

DRUGS (8)
  1. PROBIOTIC [Concomitant]
     Active Substance: PROBIOTICS NOS
  2. VITAMIN B12 [Concomitant]
     Active Substance: CYANOCOBALAMIN
  3. AMERGE [Concomitant]
     Active Substance: NARATRIPTAN HYDROCHLORIDE
  4. TOPAMAX [Concomitant]
     Active Substance: TOPIRAMATE
  5. EMGALITY [Suspect]
     Active Substance: GALCANEZUMAB-GNLM
     Indication: MIGRAINE
     Dosage: ?          QUANTITY:1 INJECTION(S);OTHER FREQUENCY:ONCE A MONTH;?
     Route: 058
     Dates: start: 20191001, end: 20200430
  6. LAMICTAL [Concomitant]
     Active Substance: LAMOTRIGINE
  7. ATIVAN [Concomitant]
     Active Substance: LORAZEPAM
  8. ATENOLOL. [Concomitant]
     Active Substance: ATENOLOL

REACTIONS (9)
  - Mood swings [None]
  - Anxiety [None]
  - Depression [None]
  - Disturbance in attention [None]
  - Sinusitis [None]
  - Social problem [None]
  - Suicidal ideation [None]
  - Feeling abnormal [None]
  - Quality of life decreased [None]

NARRATIVE: CASE EVENT DATE: 20200201
